FAERS Safety Report 12214046 (Version 1)
Quarter: 2016Q1

REPORT INFORMATION
  Report Type: Spontaneous
  Country: US (occurrence: None)
  Receive Date: 20160325
  Receipt Date: 20160325
  Transmission Date: 20160526
  Serious: Yes (Hospitalization)
  Sender: FDA-Public Use
  Company Number: None

PATIENT
  Age: 69 Year
  Sex: Female
  Weight: 65.3 kg

DRUGS (3)
  1. CARBOPLATIN. [Suspect]
     Active Substance: CARBOPLATIN
     Indication: OVARIAN CANCER
     Dosage: 11/25/15; 12/16/15, 1/6/26; 2/22/16 FRADCS EVERY 3 WEEKS INDRADERMAL INJECTION
     Route: 023
     Dates: start: 20151125
  2. DOXIL [Suspect]
     Active Substance: DOXORUBICIN HYDROCHLORIDE
  3. VACCINE CLINICAL TRIAL MC1361 [Concomitant]

REACTIONS (1)
  - Small intestinal obstruction [None]

NARRATIVE: CASE EVENT DATE: 20160323
